FAERS Safety Report 14710903 (Version 2)
Quarter: 2018Q2

REPORT INFORMATION
  Report Type: Spontaneous
  Country: US (occurrence: US)
  Receive Date: 20180403
  Receipt Date: 20180409
  Transmission Date: 20180711
  Serious: Yes (Death, Hospitalization, Other)
  Sender: FDA-Public Use
  Company Number: US-ELI_LILLY_AND_COMPANY-US201803011751

PATIENT
  Age: 95 Year
  Sex: Male

DRUGS (1)
  1. ADCIRCA [Suspect]
     Active Substance: TADALAFIL
     Indication: PULMONARY ARTERIAL HYPERTENSION
     Dosage: 20 MG, DAILY
     Route: 065
     Dates: start: 20161128

REACTIONS (5)
  - Pneumonia [Not Recovered/Not Resolved]
  - Fall [Unknown]
  - Cardiac disorder [Not Recovered/Not Resolved]
  - Death [Fatal]
  - Spinal compression fracture [Unknown]

NARRATIVE: CASE EVENT DATE: 20180326
